FAERS Safety Report 5335883-4 (Version None)
Quarter: 2007Q1

REPORT INFORMATION
  Report Type: 
  Country: None (occurrence: None)
  Receive Date: 20070301
  Receipt Date: 20060503
  Transmission Date: 20070707
  Serious: Yes (Other)
  Sender: FDA-Public Use
  Company Number: 224686

PATIENT
  Age: 10 Year
  Sex: Male

DRUGS (4)
  1. NUTROPIN AQ [Suspect]
     Indication: PRECOCIOUS PUBERTY
     Dosage: 2 MG, 7/WEEK, SUBCUTANEOUS
     Route: 058
     Dates: start: 20060222, end: 20060330
  2. LUPRON [Concomitant]
  3. CORTEF [Concomitant]
  4. FLORINEF [Concomitant]

REACTIONS (1)
  - BENIGN INTRACRANIAL HYPERTENSION [None]
